FAERS Safety Report 8819923 (Version 1)
Quarter: 2012Q4

REPORT INFORMATION
  Report Type: 
  Country: US (occurrence: US)
  Receive Date: 20121001
  Receipt Date: 20121001
  Transmission Date: 20130627
  Serious: Yes (Other)
  Sender: FDA-Public Use
  Company Number: US-BAYER-2012-096397

PATIENT
  Age: 65 Year
  Sex: Male
  Weight: 86 kg

DRUGS (1)
  1. ALEVE SMOOTH GELS [Suspect]
     Indication: ANALGESIC THERAPY
     Dosage: 2 DF, ONCE
     Route: 048
     Dates: start: 20120911, end: 20120911

REACTIONS (3)
  - Eye swelling [Not Recovered/Not Resolved]
  - Eye disorder [Not Recovered/Not Resolved]
  - Dyspnoea [Recovered/Resolved]
